FAERS Safety Report 9369578 (Version 1)
Quarter: 2013Q2

REPORT INFORMATION
  Report Type: Spontaneous
  Country: US (occurrence: US)
  Receive Date: 20130626
  Receipt Date: 20130626
  Transmission Date: 20140414
  Serious: No
  Sender: FDA-Public Use
  Company Number: US-MYLANLABS-2012S1011312

PATIENT
  Age: 70 Year
  Sex: Female
  Weight: 72.58 kg

DRUGS (2)
  1. PERFOROMIST (FORMOTEROL FUMARATE) INHALATION SOLUTION [Suspect]
     Indication: RESPIRATORY DISORDER
     Route: 055
     Dates: start: 20120524, end: 20120530
  2. PERFOROMIST (FORMOTEROL FUMARATE) INHALATION SOLUTION [Suspect]
     Indication: OFF LABEL USE
     Route: 055
     Dates: start: 20120524, end: 20120530

REACTIONS (2)
  - Local swelling [Recovered/Resolved]
  - Joint swelling [Recovered/Resolved]
